FAERS Safety Report 9846834 (Version 2)
Quarter: 2014Q2

REPORT INFORMATION
  Report Type: Spontaneous
  Country: NL (occurrence: NL)
  Receive Date: 20140127
  Receipt Date: 20140416
  Transmission Date: 20141212
  Serious: Yes (Other)
  Sender: FDA-Public Use
  Company Number: NL-BRISTOL-MYERS SQUIBB COMPANY-20034468

PATIENT
  Sex: Male

DRUGS (6)
  1. ONGLYZA TABS [Suspect]
     Indication: TYPE 2 DIABETES MELLITUS
     Route: 048
     Dates: end: 20131222
  2. METFORMIN [Concomitant]
     Dates: start: 20121128
  3. NAPROXEN [Concomitant]
  4. DICLOFENAC [Concomitant]
     Dates: start: 20130918, end: 20130923
  5. OMEPRAZOLE [Concomitant]
     Dates: start: 20131125, end: 20131210
  6. AVAMYS [Concomitant]
     Dates: start: 20130905, end: 20131104

REACTIONS (5)
  - Angina pectoris [Unknown]
  - Blood pressure increased [Unknown]
  - Amyotrophic lateral sclerosis [Unknown]
  - Muscle disorder [Unknown]
  - Fatigue [Unknown]
